FAERS Safety Report 12141082 (Version 1)
Quarter: 2016Q1

REPORT INFORMATION
  Report Type: Spontaneous
  Country: US (occurrence: None)
  Receive Date: 20160302
  Receipt Date: 20160302
  Transmission Date: 20160526
  Serious: Yes (Life-Threatening, Hospitalization, Disabling)
  Sender: FDA-Public Use
  Company Number: None

PATIENT
  Age: 74 Year
  Sex: Female
  Weight: 79.38 kg

DRUGS (10)
  1. NITROFURANTOIN MACROCRYSTALLINE [Suspect]
     Active Substance: NITROFURANTOIN\NITROFURANTOIN MONOHYDRATE
     Indication: CYSTITIS
     Dosage: 50 MG, PILL DAILY, MOUTH
     Dates: start: 2011, end: 2013
  2. FISH OIL [Concomitant]
     Active Substance: FISH OIL
  3. CLARITIN [Concomitant]
     Active Substance: LORATADINE
  4. ATORVASTATIN [Concomitant]
     Active Substance: ATORVASTATIN
  5. CEPHALEXIN. [Concomitant]
     Active Substance: CEPHALEXIN
  6. BABY ASPIRIN [Concomitant]
     Active Substance: ASPIRIN
  7. METROPROLOL [Concomitant]
     Active Substance: METOPROLOL
  8. LOSARTAN. [Concomitant]
     Active Substance: LOSARTAN
  9. LEVOTHYROXINE. [Concomitant]
     Active Substance: LEVOTHYROXINE
  10. BIOTIN [Concomitant]
     Active Substance: BIOTIN

REACTIONS (1)
  - Cough [None]

NARRATIVE: CASE EVENT DATE: 20130303
